FAERS Safety Report 4775276-1 (Version None)
Quarter: 2005Q3

REPORT INFORMATION
  Report Type: 
  Country: None (occurrence: None)
  Receive Date: 20050921
  Receipt Date: 20050921
  Transmission Date: 20060218
  Serious: Yes (Hospitalization)
  Sender: FDA-Public Use
  Company Number: None

PATIENT
  Age: 44 Year
  Sex: Female
  Weight: 64.5 kg

DRUGS (6)
  1. TAXOL [Suspect]
     Indication: BREAST CANCER
     Dosage: 132 MG  IV
     Route: 042
     Dates: start: 20050913
  2. DECADRON [Concomitant]
  3. TAGAMET [Concomitant]
  4. BENADRYL [Concomitant]
  5. ADRIAMYCIN PFS [Concomitant]
  6. CYTOXAN [Concomitant]

REACTIONS (8)
  - CHILLS [None]
  - DIARRHOEA [None]
  - EPISTAXIS [None]
  - INFECTION [None]
  - PAIN [None]
  - PYREXIA [None]
  - SEPSIS [None]
  - VOMITING [None]
